FAERS Safety Report 9683471 (Version 4)
Quarter: 2014Q1

REPORT INFORMATION
  Report Type: Report from Study
  Country: CA (occurrence: CA)
  Receive Date: 20131112
  Receipt Date: 20140207
  Transmission Date: 20141002
  Serious: Yes (Hospitalization)
  Sender: FDA-Public Use
  Company Number: CA-ABBVIE-13P-028-1166312-00

PATIENT
  Age: 24 Year
  Sex: Male
  Weight: 65.83 kg

DRUGS (6)
  1. HUMIRA [Suspect]
     Indication: COLITIS ULCERATIVE
     Route: 058
     Dates: start: 20131010, end: 20131023
  2. HUMIRA [Suspect]
     Route: 058
     Dates: start: 20131106, end: 20140101
  3. MULTIVITAMINS [Concomitant]
     Indication: VITAMIN SUPPLEMENTATION
     Route: 048
  4. VITAMIN D NOS [Concomitant]
     Indication: VITAMIN SUPPLEMENTATION
     Route: 048
  5. PREDNISONE [Concomitant]
     Indication: PRODUCT USED FOR UNKNOWN INDICATION
     Route: 048
  6. BLOOD THINNER [Concomitant]
     Indication: PRODUCT USED FOR UNKNOWN INDICATION

REACTIONS (32)
  - Disturbance in attention [Not Recovered/Not Resolved]
  - Dehydration [Not Recovered/Not Resolved]
  - Colitis [Not Recovered/Not Resolved]
  - Colitis [Not Recovered/Not Resolved]
  - Eye pain [Not Recovered/Not Resolved]
  - Dizziness [Not Recovered/Not Resolved]
  - Tremor [Unknown]
  - Hyperhidrosis [Unknown]
  - Headache [Unknown]
  - Dysuria [Recovering/Resolving]
  - Frequent bowel movements [Not Recovered/Not Resolved]
  - Haematochezia [Not Recovered/Not Resolved]
  - Haemoglobin decreased [Not Recovered/Not Resolved]
  - Vision blurred [Unknown]
  - Balance disorder [Unknown]
  - Speech disorder [Not Recovered/Not Resolved]
  - Weight decreased [Not Recovered/Not Resolved]
  - Colitis [Unknown]
  - Colitis ulcerative [Not Recovered/Not Resolved]
  - Drug ineffective [Unknown]
  - Anxiety [Not Recovered/Not Resolved]
  - Nervousness [Not Recovered/Not Resolved]
  - Infection [Not Recovered/Not Resolved]
  - Fatigue [Not Recovered/Not Resolved]
  - Rectal haemorrhage [Not Recovered/Not Resolved]
  - Chills [Not Recovered/Not Resolved]
  - Delirium [Not Recovered/Not Resolved]
  - Confusional state [Not Recovered/Not Resolved]
  - Hypophagia [Not Recovered/Not Resolved]
  - Thrombosis [Unknown]
  - Pain in extremity [Not Recovered/Not Resolved]
  - Drug ineffective [Not Recovered/Not Resolved]
